FAERS Safety Report 17032599 (Version 2)
Quarter: 2019Q4

REPORT INFORMATION
  Report Type: Report from Study
  Country: US (occurrence: US)
  Receive Date: 20191114
  Receipt Date: 20191213
  Transmission Date: 20200122
  Serious: Yes (Death, Other)
  Sender: FDA-Public Use
  Company Number: US-BAYER-2019-164439

PATIENT
  Age: 73 Year
  Sex: Female
  Weight: 60.5 kg

DRUGS (7)
  1. ALTEPLASE. [Concomitant]
     Active Substance: ALTEPLASE
     Indication: COLON CANCER
     Dosage: UNK
  2. SODIUM CHLORIDE. [Concomitant]
     Active Substance: SODIUM CHLORIDE
     Dosage: 0.9 % 500 ML
     Route: 042
     Dates: start: 20190524
  3. ZOMETA [Concomitant]
     Active Substance: ZOLEDRONIC ACID
     Indication: METASTASES TO BONE
     Dosage: 4 MG
     Route: 042
     Dates: start: 20190830
  4. STIVARGA [Suspect]
     Active Substance: REGORAFENIB
     Indication: HEPATIC CANCER
     Dosage: 80 MG, QD
     Route: 048
     Dates: start: 20190904, end: 2019
  5. STIVARGA [Suspect]
     Active Substance: REGORAFENIB
     Indication: COLON CANCER
     Dosage: UNK
     Dates: start: 2019, end: 2019
  6. MOM [Concomitant]
     Active Substance: MAGNESIUM HYDROXIDE
     Dosage: UNK
  7. MIRALAX [Concomitant]
     Active Substance: POLYETHYLENE GLYCOL 3350
     Dosage: UNK

REACTIONS (15)
  - Product dose omission [None]
  - Drug intolerance [None]
  - Gait disturbance [None]
  - Abdominal pain [None]
  - Abdominal distension [None]
  - Asthenia [Not Recovered/Not Resolved]
  - Liver function test increased [None]
  - Walking aid user [None]
  - Arthralgia [None]
  - Fatigue [None]
  - Death [Fatal]
  - Off label use [Not Recovered/Not Resolved]
  - Nausea [None]
  - Leukopenia [None]
  - Feeding disorder [None]

NARRATIVE: CASE EVENT DATE: 20190904
